FAERS Safety Report 7547631-8 (Version None)
Quarter: 2011Q2

REPORT INFORMATION
  Report Type: 
  Country: None (occurrence: None)
  Receive Date: 20110614
  Receipt Date: 20110601
  Transmission Date: 20111010
  Serious: Yes (Disabling)
  Sender: FDA-Public Use
  Company Number: FR-ABBOTT-11P-056-0729698-00

PATIENT
  Sex: Female
  Weight: 74 kg

DRUGS (19)
  1. MOBIC [Concomitant]
     Indication: SPONDYLITIS
     Dates: start: 20061109
  2. ESTRADERM [Concomitant]
     Indication: MENOPAUSE
     Dates: end: 20100908
  3. LEVOTHYROXINE SODIUM [Concomitant]
     Indication: HYPOTHYROIDISM
  4. FLECAINIDE ACETATE [Concomitant]
     Indication: ARRHYTHMIA
     Dates: start: 19900101
  5. FLECAINIDE ACETATE [Concomitant]
     Indication: ATRIAL FIBRILLATION
  6. ASCORBIC ACID [Concomitant]
     Indication: PROPHYLAXIS
  7. GAVISCON [Concomitant]
     Indication: DYSPHAGIA
     Dates: start: 20100622
  8. TROPHICREME [Concomitant]
     Indication: VULVOVAGINAL DRYNESS
     Dosage: 0.1%
     Dates: start: 20110111
  9. PROGESTERONE [Concomitant]
     Indication: PROPHYLAXIS
  10. HUMIRA [Suspect]
     Indication: SPONDYLITIS
     Route: 058
     Dates: start: 20100520, end: 20110519
  11. LANZOR [Concomitant]
     Indication: HIATUS HERNIA
     Dates: start: 19900101, end: 20101101
  12. PROGESTERONE [Concomitant]
     Indication: MENOPAUSE
     Dates: end: 20100908
  13. VOLTAREN [Concomitant]
     Indication: CONTUSION
     Dates: start: 20101210, end: 20101211
  14. XYZAL [Concomitant]
     Indication: PROPHYLAXIS
  15. ESTRADERM [Concomitant]
     Indication: PROPHYLAXIS
  16. ASCORBIC ACID [Concomitant]
     Indication: ASTHENIA
     Dates: start: 20071001
  17. XYZAL [Concomitant]
     Indication: INJECTION SITE REACTION
     Dates: start: 20101007
  18. RABEPRAZOLE SODIUM [Concomitant]
     Indication: HIATUS HERNIA
     Dates: start: 20101102
  19. MONAZOL [Concomitant]
     Indication: VULVOVAGINAL MYCOTIC INFECTION
     Dates: start: 20110409

REACTIONS (1)
  - MACULOPATHY [None]
